FAERS Safety Report 5401957-2 (Version None)
Quarter: 2007Q3

REPORT INFORMATION
  Report Type: 
  Country: None (occurrence: None)
  Receive Date: 20070731
  Receipt Date: 20070725
  Transmission Date: 20080115
  Serious: Yes (Disabling)
  Sender: FDA-Public Use
  Company Number: JP-MERCK-0707USA04758

PATIENT
  Age: 54 Year
  Sex: Female

DRUGS (5)
  1. SINGULAIR [Suspect]
     Indication: ASTHMA
     Route: 048
     Dates: start: 20070620, end: 20070724
  2. LAFUTIDINE [Concomitant]
     Indication: GASTRIC ULCER
     Route: 048
     Dates: start: 20070620, end: 20070724
  3. FLUTIDE [Concomitant]
     Indication: ASTHMA
     Dates: start: 20070620, end: 20070724
  4. SEREVENT [Concomitant]
     Indication: ASTHMA
     Dates: start: 20070620, end: 20070724
  5. [THERAPY UNSPECIFIED] [Concomitant]
     Indication: DIABETES MELLITUS
     Route: 048

REACTIONS (1)
  - HEPATIC FUNCTION ABNORMAL [None]
